FAERS Safety Report 8336640-7 (Version None)
Quarter: 2012Q2

REPORT INFORMATION
  Report Type: 
  Country: None (occurrence: None)
  Receive Date: 20120504
  Receipt Date: 20120503
  Transmission Date: 20120825
  Serious: Yes (Hospitalization)
  Sender: FDA-Public Use
  Company Number: GB-SANOFI-AVENTIS-2012SA022117

PATIENT
  Age: 65 Year
  Sex: Male

DRUGS (12)
  1. METFORMIN HCL [Suspect]
     Route: 048
  2. ENALAPRIL MALEATE [Concomitant]
  3. SODIUM CHLORIDE [Concomitant]
  4. PRAVASTATIN [Concomitant]
  5. ATORVASTATIN CALCIUM [Concomitant]
  6. DIGOXIN [Concomitant]
  7. ALL OTHER THERAPEUTIC PRODUCTS [Concomitant]
  8. INSULIN [Concomitant]
  9. PLACEBO [Suspect]
     Route: 065
  10. DABIGATRAN [Concomitant]
  11. GLIMEPIRIDE [Suspect]
     Route: 048
  12. AMLODIPINE [Concomitant]

REACTIONS (1)
  - ANGINA UNSTABLE [None]
